FAERS Safety Report 10516546 (Version 1)
Quarter: 2014Q4

REPORT INFORMATION
  Report Type: Report from Study
  Country: CA (occurrence: CA)
  Receive Date: 20141014
  Receipt Date: 20141014
  Transmission Date: 20150528
  Serious: Yes (Other)
  Sender: FDA-Public Use
  Company Number: CA-JNJFOC-20141005759

PATIENT
  Age: 58 Year
  Sex: Female
  Weight: 53 kg

DRUGS (6)
  1. VITAMIN D [Concomitant]
     Active Substance: CHOLECALCIFEROL
     Route: 065
  2. REMICADE [Suspect]
     Active Substance: INFLIXIMAB
     Indication: COLITIS
     Route: 042
     Dates: start: 20140502
  3. MEZAVANT [Concomitant]
     Active Substance: MESALAMINE
     Route: 065
  4. MULTIVIT [Concomitant]
     Active Substance: VITAMINS
     Route: 065
  5. CALCIUM [Concomitant]
     Active Substance: CALCIUM
     Route: 065
  6. REMICADE [Suspect]
     Active Substance: INFLIXIMAB
     Indication: CROHN^S DISEASE
     Route: 042
     Dates: start: 20140502

REACTIONS (3)
  - Cardiac valve disease [Not Recovered/Not Resolved]
  - Chest discomfort [Not Recovered/Not Resolved]
  - Headache [Not Recovered/Not Resolved]

NARRATIVE: CASE EVENT DATE: 201406
